FAERS Safety Report 16011635 (Version 1)
Quarter: 2019Q1

REPORT INFORMATION
  Report Type: Spontaneous
  Country: ES (occurrence: ES)
  Receive Date: 20190227
  Receipt Date: 20190227
  Transmission Date: 20190418
  Serious: Yes (Other)
  Sender: FDA-Public Use
  Company Number: ES-GLAXOSMITHKLINE-ES2019031084

PATIENT
  Age: 39 Year
  Sex: Female
  Weight: 64 kg

DRUGS (8)
  1. ZINNAT [Suspect]
     Active Substance: CEFUROXIME AXETIL
     Indication: ACUTE SINUSITIS
     Dosage: 500 MG, BID (10 SACHETS, EVERY 12 HOURS)
     Route: 048
     Dates: start: 20190130, end: 20190130
  2. ENANTYUM [Concomitant]
     Active Substance: DEXKETOPROFEN TROMETAMOL
     Indication: MIGRAINE WITH AURA
     Dosage: UNK (20 TABLETS, SPORADICALLY)
     Route: 048
     Dates: start: 2017
  3. FOLI-DOCE [Concomitant]
     Active Substance: CYANOCOBALAMIN\FOLIC ACID
     Indication: BLOOD FOLATE DECREASED
     Dosage: 1 DF, QD (28 TABLETS)
     Route: 048
     Dates: start: 2016
  4. HIDROFEROL [Concomitant]
     Active Substance: CALCIFEDIOL
     Indication: VITAMIN D DECREASED
     Dosage: 1 DF, UNK (10 DRINKABLE AMPOULES OF 1.5ML, 1 AMPOULE EVERY 15 DAYS)
     Route: 048
     Dates: start: 2018
  5. PANTOPRAZOLE [Concomitant]
     Active Substance: PANTOPRAZOLE
     Indication: PROPHYLAXIS
     Dosage: 40 MG, QD (28 TABLETS, 1 BEFORE BREAKFAST)
     Route: 048
     Dates: start: 2013
  6. TOPAMAX [Concomitant]
     Active Substance: TOPIRAMATE
     Indication: EPILEPSY
     Dosage: 200 MG, BID (60 TABLETS EVERY 12 HOURS)
     Route: 048
     Dates: start: 2013
  7. ALMOGRAN [Concomitant]
     Active Substance: ALMOTRIPTAN MALATE
     Indication: MIGRAINE
     Dosage: UNK (6 TABLETS FOR NOW, IT HAS BEEN A LONG TIME)
     Route: 048
     Dates: start: 2018
  8. NOIAFREN [Concomitant]
     Active Substance: CLOBAZAM
     Indication: EPILEPSY
     Dosage: 20 MG, BID (20 TABLETS, EVERY 12 HOURS)
     Route: 048
     Dates: start: 2013

REACTIONS (5)
  - Dizziness [Recovered/Resolved with Sequelae]
  - Headache [Recovered/Resolved with Sequelae]
  - Dystonia [Recovered/Resolved with Sequelae]
  - Yellow skin [Recovered/Resolved with Sequelae]
  - Muscle contracture [Recovered/Resolved with Sequelae]

NARRATIVE: CASE EVENT DATE: 20190130
